FAERS Safety Report 13945823 (Version 1)
Quarter: 2017Q3

REPORT INFORMATION
  Report Type: Spontaneous
  Country: ZA (occurrence: ZA)
  Receive Date: 20170907
  Receipt Date: 20170907
  Transmission Date: 20171128
  Serious: Yes (Hospitalization, Other)
  Sender: FDA-Public Use
  Company Number: ZA-CIPLA LTD.-2017ZA16062

PATIENT

DRUGS (1)
  1. TENOFOVIR/EMTRICITABINE/EFAVIRENZ [Suspect]
     Active Substance: EFAVIRENZ\EMTRICITABINE\TENOFOVIR DISOPROXIL FUMARATE
     Indication: HIV INFECTION
     Dosage: 300/200/600 MG, UNK
     Route: 065

REACTIONS (8)
  - Thrombocytopenia [Unknown]
  - Ataxia [Recovered/Resolved]
  - Leukocytosis [Unknown]
  - Acute kidney injury [Recovering/Resolving]
  - Drug level increased [Unknown]
  - Encephalopathy [Unknown]
  - Sepsis [Unknown]
  - International normalised ratio increased [Unknown]
